FAERS Safety Report 4912941-7 (Version None)
Quarter: 2006Q1

REPORT INFORMATION
  Report Type: 
  Country: None (occurrence: None)
  Receive Date: 20060210
  Receipt Date: 20060127
  Transmission Date: 20060701
  Serious: Yes (Death)
  Sender: FDA-Public Use
  Company Number: L05-USA-03935-57

PATIENT
  Age: 44 Year
  Sex: Female

DRUGS (6)
  1. LEVOTHYROXINE SODIUM [Suspect]
     Dosage: 100 MCG
  2. PROPRANOLOL [Suspect]
     Dosage: 20 MG
  3. BUPROPION HYDROCHLORIDE [Suspect]
     Dosage: 150 MG
  4. LITHIUM [Suspect]
     Dosage: 300 MG
  5. RANITIDINE [Suspect]
     Dosage: 150 MG
  6. QUETIAPINE [Suspect]

REACTIONS (33)
  - ALANINE AMINOTRANSFERASE INCREASED [None]
  - ANOXIC ENCEPHALOPATHY [None]
  - ASPARTATE AMINOTRANSFERASE INCREASED [None]
  - BLOOD BICARBONATE DECREASED [None]
  - BLOOD CHLORIDE INCREASED [None]
  - BLOOD CREATINE PHOSPHOKINASE INCREASED [None]
  - BLOOD GLUCOSE INCREASED [None]
  - BLOOD PH DECREASED [None]
  - BLOOD PRESSURE DIASTOLIC INCREASED [None]
  - BLOOD PRESSURE IMMEASURABLE [None]
  - BLOOD THYROID STIMULATING HORMONE INCREASED [None]
  - BRAIN OEDEMA [None]
  - BRAIN STEM SYNDROME [None]
  - CARDIAC ARREST [None]
  - CEREBROVASCULAR DISORDER [None]
  - COMPLETED SUICIDE [None]
  - CONVULSION [None]
  - DIALYSIS [None]
  - ELECTROCARDIOGRAM QRS COMPLEX PROLONGED [None]
  - ELECTROCARDIOGRAM QT PROLONGED [None]
  - ELECTROCARDIOGRAM T WAVE INVERSION [None]
  - HYPERTENSION [None]
  - HYPOREFLEXIA [None]
  - NERVOUS SYSTEM DISORDER [None]
  - NEUROLEPTIC MALIGNANT SYNDROME [None]
  - PO2 INCREASED [None]
  - PULMONARY CONGESTION [None]
  - PULMONARY OEDEMA [None]
  - PYREXIA [None]
  - RESPIRATORY ARREST [None]
  - THERAPEUTIC AGENT TOXICITY [None]
  - VENTRICULAR EXTRASYSTOLES [None]
  - VOMITING [None]
